FAERS Safety Report 19198525 (Version 1)
Quarter: 2021Q2

REPORT INFORMATION
  Report Type: Spontaneous
  Country: US (occurrence: US)
  Receive Date: 20210428
  Receipt Date: 20210428
  Transmission Date: 20210717
  Serious: Yes (Disabling)
  Sender: FDA-Public Use
  Company Number: None

PATIENT
  Age: 28 Year
  Sex: Female
  Weight: 111.13 kg

DRUGS (1)
  1. NEXPLANON [Suspect]
     Active Substance: ETONOGESTREL
     Dates: start: 20150815, end: 20190610

REACTIONS (3)
  - Menstrual disorder [None]
  - Weight increased [None]
  - Hepatic steatosis [None]

NARRATIVE: CASE EVENT DATE: 20190610
